FAERS Safety Report 25089199 (Version 1)
Quarter: 2025Q1

REPORT INFORMATION
  Report Type: Spontaneous
  Country: US (occurrence: None)
  Receive Date: 20250316
  Receipt Date: 20250316
  Transmission Date: 20250409
  Serious: Yes (Disabling)
  Sender: FDA-CTU
  Company Number: None

PATIENT
  Age: 60 Year
  Sex: Female
  Weight: 106.65 kg

DRUGS (5)
  1. OZEMPIC [Suspect]
     Active Substance: SEMAGLUTIDE
     Indication: Diabetes mellitus
     Route: 058
     Dates: start: 20241220, end: 20250221
  2. JARDIANCE [Concomitant]
     Active Substance: EMPAGLIFLOZIN
  3. ZETIA [Concomitant]
     Active Substance: EZETIMIBE
  4. FISH OIL [Concomitant]
     Active Substance: FISH OIL
  5. MINERALS\VITAMINS [Concomitant]
     Active Substance: MINERALS\VITAMINS

REACTIONS (3)
  - Neovascular age-related macular degeneration [None]
  - Blindness [None]
  - Impaired driving ability [None]

NARRATIVE: CASE EVENT DATE: 20250208
